FAERS Safety Report 8962481 (Version 2)
Quarter: 2013Q1

REPORT INFORMATION
  Report Type: Spontaneous
  Country: CA (occurrence: CA)
  Receive Date: 20121213
  Receipt Date: 20130104
  Transmission Date: 20140127
  Serious: Yes (Other)
  Sender: FDA-Public Use
  Company Number: CA-MYLANLABS-2012S1021593

PATIENT
  Sex: Female
  Weight: 64.5 kg

DRUGS (4)
  1. MYLAN [Suspect]
     Indication: BREAST CANCER
     Dates: start: 200712, end: 2009
  2. LETROZOLE [Suspect]
     Indication: BREAST CANCER
     Route: 048
  3. CAPECITABINE [Suspect]
     Indication: BREAST CANCER
  4. EXEMESTANE [Suspect]
     Indication: BREAST CANCER

REACTIONS (2)
  - Breast cancer [Not Recovered/Not Resolved]
  - Disease progression [Not Recovered/Not Resolved]
